FAERS Safety Report 26093657 (Version 1)
Quarter: 2025Q4

REPORT INFORMATION
  Report Type: Spontaneous
  Country: CA (occurrence: None)
  Receive Date: 20251126
  Receipt Date: 20251126
  Transmission Date: 20260118
  Serious: Yes (Other)
  Sender: ORGANON
  Company Number: CA-ORGANON-O2511CAN002005

PATIENT
  Age: 64 Year
  Sex: Female

DRUGS (9)
  1. EZETIMIBE [Suspect]
     Active Substance: EZETIMIBE
     Dosage: UNK
     Route: 065
  2. STEQEYMA [Suspect]
     Active Substance: USTEKINUMAB-STBA
     Indication: Crohn^s disease
     Dosage: 90 MILLIGRAM (SOLUTION SUBCUTANEOUS)
  3. BISACODYL [Concomitant]
     Active Substance: BISACODYL
     Dosage: UNK (DOSAGE FORM: NOT SPECIFIED)
     Route: 065
  4. CALCIUM [Concomitant]
     Active Substance: CALCIUM
     Dosage: UNK (DOSAGE FORM: NOT SPECIFIED)
     Route: 065
  5. CETIRIZINE [Concomitant]
     Active Substance: CETIRIZINE HYDROCHLORIDE
     Dosage: UNK
     Route: 065
  6. LORAZEPAM [Concomitant]
     Active Substance: LORAZEPAM
     Dosage: UNK (DOSAGE FORM: NOT SPECIFIED)
     Route: 065
  7. RANITIDINE [Concomitant]
     Active Substance: RANITIDINE
     Dosage: UNK
     Route: 065
  8. RIVACOCET [Concomitant]
     Dosage: UNK
     Route: 065
  9. SYNTHROID [Concomitant]
     Active Substance: LEVOTHYROXINE SODIUM
     Dosage: UNK (DOSAGE FORM: NOT SPECIFIED)
     Route: 065

REACTIONS (4)
  - Abdominal discomfort [Recovering/Resolving]
  - Faeces discoloured [Recovering/Resolving]
  - Gastrointestinal inflammation [Recovering/Resolving]
  - Oral disorder [Recovering/Resolving]
